FAERS Safety Report 9712351 (Version 3)
Quarter: 2014Q2

REPORT INFORMATION
  Report Type: Spontaneous
  Country: US (occurrence: US)
  Receive Date: 20131126
  Receipt Date: 20140510
  Transmission Date: 20141212
  Serious: No
  Sender: FDA-Public Use
  Company Number: US-BRISTOL-MYERS SQUIBB COMPANY-19167147

PATIENT
  Age: 41 Year
  Sex: Female
  Weight: 134.69 kg

DRUGS (3)
  1. BYDUREON [Suspect]
     Indication: TYPE 2 DIABETES MELLITUS
     Dates: start: 20130604, end: 20130723
  2. METFORMIN [Concomitant]
  3. LISINOPRIL [Concomitant]

REACTIONS (2)
  - Pregnancy [Unknown]
  - Injection site nodule [Not Recovered/Not Resolved]
